FAERS Safety Report 9346013 (Version 1)
Quarter: 2013Q2

REPORT INFORMATION
  Report Type: Spontaneous
  Country: US (occurrence: US)
  Receive Date: 20130613
  Receipt Date: 20130613
  Transmission Date: 20140414
  Serious: Yes (Death, Other)
  Sender: FDA-Public Use
  Company Number: US-TARO PHARMACEUTICALS U.S.A., INC-2013SUN00687

PATIENT
  Age: 23 Month
  Sex: 0
  Weight: 12.5 kg

DRUGS (9)
  1. PHENYTOIN SODIUM [Suspect]
     Indication: CONVULSION
     Dosage: UNK
     Route: 065
  2. PHENYTOIN SODIUM [Interacting]
     Dosage: 125 MG, DAILY
     Route: 065
  3. PHENYTOIN SODIUM [Interacting]
     Dosage: 100 MG, DAILY
     Route: 065
  4. CARBAMAZEPINE [Interacting]
     Indication: CONVULSION
     Dosage: 100 MG, DAILY
     Route: 065
  5. CARBAMAZEPINE [Interacting]
     Dosage: 150 MG, DAILY
     Route: 065
  6. CARBAMAZEPINE [Interacting]
     Dosage: 200 MG, DAILY
     Route: 065
  7. CARBAMAZEPINE [Interacting]
     Dosage: 300 MG, DAILY
     Route: 065
  8. CARBAMAZEPINE [Interacting]
     Dosage: 400 MG, DAILY
     Route: 065
  9. CARBAMAZEPINE [Interacting]
     Dosage: 500 MG, DAILY
     Route: 065

REACTIONS (3)
  - Toxicity to various agents [Fatal]
  - Drug interaction [Unknown]
  - Prescribed overdose [Unknown]
